FAERS Safety Report 7796576-7 (Version None)
Quarter: 2011Q4

REPORT INFORMATION
  Report Type: 
  Country: None (occurrence: None)
  Receive Date: 20111005
  Receipt Date: 20110929
  Transmission Date: 20120403
  Serious: Yes (Other)
  Sender: FDA-Public Use
  Company Number: FR-PFIZER INC-2011233246

PATIENT
  Sex: Male

DRUGS (1)
  1. MEDROL [Suspect]
     Dosage: 16 MG

REACTIONS (1)
  - PNEUMOPERITONEUM [None]
